FAERS Safety Report 21301877 (Version 2)
Quarter: 2022Q4

REPORT INFORMATION
  Report Type: Spontaneous
  Country: JP (occurrence: JP)
  Receive Date: 20220907
  Receipt Date: 20221007
  Transmission Date: 20230113
  Serious: Yes (Other)
  Sender: FDA-Public Use
  Company Number: JP-MYLANLABS-2022M1090143

PATIENT
  Age: 84 Year
  Sex: Female

DRUGS (1)
  1. ANHIBA [Suspect]
     Active Substance: ACETAMINOPHEN
     Indication: Pyrexia
     Dosage: 200 MILLIGRAM, QD
     Route: 054

REACTIONS (3)
  - Circulatory collapse [Unknown]
  - Blood pressure decreased [Recovered/Resolved]
  - Generalised oedema [Recovered/Resolved]
